FAERS Safety Report 9014339 (Version 1)
Quarter: 2013Q1

REPORT INFORMATION
  Report Type: Spontaneous
  Country: US (occurrence: US)
  Receive Date: 20130115
  Receipt Date: 20130115
  Transmission Date: 20140127
  Serious: Yes (Hospitalization, Other)
  Sender: FDA-Public Use
  Company Number: US-PFIZER INC-2013016905

PATIENT
  Sex: Female
  Weight: 86.17 kg

DRUGS (4)
  1. DILANTIN [Suspect]
     Indication: EPILEPSY
     Dosage: UNK
  2. DILANTIN [Suspect]
     Dosage: 300 MG,DAILY
  3. KEPPRA [Suspect]
     Indication: EPILEPSY
     Dosage: 1500 MG, 2X/DAY
  4. TRILEPTAL [Suspect]
     Indication: EPILEPSY
     Dosage: UNK

REACTIONS (2)
  - Grand mal convulsion [Unknown]
  - Convulsion [Unknown]
